FAERS Safety Report 6037823-1 (Version None)
Quarter: 2009Q1

REPORT INFORMATION
  Report Type: 
  Country: None (occurrence: None)
  Receive Date: 20090113
  Receipt Date: 20081223
  Transmission Date: 20090719
  Serious: Yes (Other)
  Sender: FDA-Public Use
  Company Number: 20080378/

PATIENT
  Age: 56 Year
  Sex: Male

DRUGS (2)
  1. VENOFER [Suspect]
     Indication: ERYTHROPOIESIS ABNORMAL
     Dosage: 50 MG INTRAVENOUS
     Dates: start: 20080805, end: 20080805
  2. AZATHIOPRINE [Concomitant]

REACTIONS (5)
  - ABDOMINAL PAIN [None]
  - HAEMATURIA [None]
  - HAEMOLYSIS [None]
  - OFF LABEL USE [None]
  - TRANSAMINASES INCREASED [None]
